FAERS Safety Report 5616605-6 (Version None)
Quarter: 2008Q1

REPORT INFORMATION
  Report Type: 
  Country: None (occurrence: None)
  Receive Date: 20080207
  Receipt Date: 20070911
  Transmission Date: 20080703
  Serious: No
  Sender: FDA-Public Use
  Company Number: A0680887A

PATIENT
  Age: 45 Year
  Sex: Female

DRUGS (6)
  1. PAXIL CR [Suspect]
     Indication: DEPRESSION
     Dosage: 12.5MG PER DAY
     Route: 048
     Dates: start: 20070301
  2. BENICAR [Concomitant]
  3. JANUVIA [Concomitant]
  4. GLUCOPHAGE [Concomitant]
  5. NEXIUM [Concomitant]
  6. NORVASC [Concomitant]

REACTIONS (1)
  - ANXIETY [None]
